FAERS Safety Report 16782862 (Version 2)
Quarter: 2019Q3

REPORT INFORMATION
  Report Type: Other
  Country: US (occurrence: US)
  Receive Date: 20190906
  Receipt Date: 20190906
  Transmission Date: 20191005
  Serious: Yes (Other)
  Sender: FDA-Public Use
  Company Number: US-LANNETT COMPANY, INC.-US-2019LAN000938

PATIENT

DRUGS (1)
  1. LEVOTHYROXINE SODIUM. [Suspect]
     Active Substance: LEVOTHYROXINE SODIUM
     Indication: PRODUCT USED FOR UNKNOWN INDICATION
     Dosage: UNK
     Route: 065
     Dates: start: 20171218, end: 20180430

REACTIONS (5)
  - Product shape issue [Unknown]
  - Product size issue [Unknown]
  - Product colour issue [Unknown]
  - Colitis [Recovering/Resolving]
  - Diarrhoea [Recovering/Resolving]

NARRATIVE: CASE EVENT DATE: 20171218
